FAERS Safety Report 22120235 (Version 1)
Quarter: 2023Q1

REPORT INFORMATION
  Report Type: Report from Study
  Country: IT (occurrence: IT)
  Receive Date: 20230321
  Receipt Date: 20230321
  Transmission Date: 20230418
  Serious: Yes (Other)
  Sender: FDA-Public Use
  Company Number: None

PATIENT
  Age: 68 Year
  Sex: Female
  Weight: 48 kg

DRUGS (15)
  1. IRINOTECAN [Suspect]
     Active Substance: IRINOTECAN
     Indication: Pancreatic carcinoma
     Dosage: 138 MILLIGRAM, Q2W, EVERY 14 DAYS
     Route: 042
  2. OXALIPLATIN [Suspect]
     Active Substance: OXALIPLATIN
     Indication: Pancreatic carcinoma
     Dosage: 124 MILLIGRAM, Q2W, EVERY 14 DAYS
     Route: 042
  3. FLUOROURACIL [Suspect]
     Active Substance: FLUOROURACIL
     Indication: Pancreatic carcinoma
     Dosage: 3500 MILLIGRAM, Q2W EVERY 14 DAYS
     Route: 042
  4. CYMBALTA [Concomitant]
     Active Substance: DULOXETINE HYDROCHLORIDE
     Dosage: 30 MILLIGRAM, QD (1TAB/DAY)
     Route: 048
  5. ZOFENOPRIL [Concomitant]
     Active Substance: ZOFENOPRIL
     Dosage: 1 DOSAGE FORM, QD (30/12.5MG,1TAB/DAY)
     Route: 065
  6. CHOLECALCIFEROL [Concomitant]
     Active Substance: CHOLECALCIFEROL
     Dosage: 6 GTT DROPS 10000 IU, 6 DROPS/DAY
     Route: 048
  7. BROMAZEPAM [Concomitant]
     Active Substance: BROMAZEPAM
     Dosage: 14 GTT DROPS (2.5 MG/ML 14 DROPS/DAY)
     Route: 048
  8. CREON [Concomitant]
     Active Substance: PANCRELIPASE AMYLASE\PANCRELIPASE LIPASE\PANCRELIPASE PROTEASE
     Dosage: 5 DOSAGE FORM, QD (5 CAPSULES/DAY)
     Route: 048
  9. BISOPROLOL [Concomitant]
     Active Substance: BISOPROLOL
     Dosage: 2 DOSAGE FORM, QD (1.25 MG, 2 CAPSULES/DAY)
     Route: 048
  10. AMLODIPINE BESYLATE [Concomitant]
     Active Substance: AMLODIPINE BESYLATE
     Dosage: 10 MILLIGRAM, QD (10 MG, 1 TAB/DAY)
     Route: 065
  11. LORMETAZEPAM [Concomitant]
     Active Substance: LORMETAZEPAM
     Dosage: 20 GTT DROPS, QD (2.5 MG/ML, 20 DROPS/DAY)
     Route: 048
  12. SIMVASTATIN [Concomitant]
     Active Substance: SIMVASTATIN
     Dosage: 20 MILLIGRAM, QD 1 TAB/DAY
     Route: 048
  13. FLURAZEPAM MONOHYDROCHLORIDE [Concomitant]
     Active Substance: FLURAZEPAM MONOHYDROCHLORIDE
     Dosage: 15 MILLIGRAM, QD, 1 TAB/DAY
     Route: 048
  14. ZOLOFT [Concomitant]
     Active Substance: SERTRALINE HYDROCHLORIDE
     Dosage: 25 MILLIGRAM, QD (50 MG, 1/2 TAB DAY)
     Route: 048
  15. TICLOPIDINE [Concomitant]
     Active Substance: TICLOPIDINE
     Dosage: 250 MILLIGRAM, QD 2 TAB /DAY
     Route: 048

REACTIONS (6)
  - Hypokalaemia [Recovered/Resolved]
  - Haemorrhoids [Unknown]
  - Decreased appetite [Not Recovered/Not Resolved]
  - Asthenia [Unknown]
  - Diarrhoea [Not Recovered/Not Resolved]
  - Nausea [Unknown]

NARRATIVE: CASE EVENT DATE: 20221201
